FAERS Safety Report 4323292-6 (Version None)
Quarter: 2004Q1

REPORT INFORMATION
  Report Type: 
  Country: None (occurrence: None)
  Receive Date: 20040322
  Receipt Date: 20040308
  Transmission Date: 20041129
  Serious: Yes (Death, Hospitalization)
  Sender: FDA-Public Use
  Company Number: 04P-144-0251976-00

PATIENT
  Age: 30 Year
  Sex: Male

DRUGS (4)
  1. KALETRA [Suspect]
     Indication: HIV INFECTION
     Dosage: 3 CAPSULES, 2 IN 1 D; ORAL
     Route: 048
     Dates: start: 20020710, end: 20020724
  2. STAVUDINE [Concomitant]
  3. LAMIVUDINE [Concomitant]
  4. NEVIRAPINE [Concomitant]

REACTIONS (21)
  - ACUTE PULMONARY OEDEMA [None]
  - AORTIC VALVE INCOMPETENCE [None]
  - ASCITES [None]
  - CARDIAC FAILURE [None]
  - CARDIAC MURMUR [None]
  - DYSPNOEA EXERTIONAL [None]
  - ENDOCARDITIS [None]
  - GENERALISED OEDEMA [None]
  - HEPATIC FAILURE [None]
  - HEPATITIS C [None]
  - HYPOVENTILATION [None]
  - JAUNDICE [None]
  - JUGULAR VEIN DISTENSION [None]
  - MALAISE [None]
  - NEPHROTIC SYNDROME [None]
  - ORTHOPNOEA [None]
  - TACHYCARDIA [None]
  - TACHYPNOEA [None]
  - VENOUS STASIS [None]
  - VOMITING [None]
  - WEIGHT DECREASED [None]
